FAERS Safety Report 9132235 (Version 1)
Quarter: 2013Q1

REPORT INFORMATION
  Report Type: Spontaneous
  Country: US (occurrence: US)
  Receive Date: 20130120
  Receipt Date: 20130120
  Transmission Date: 20140127
  Serious: No
  Sender: FDA-Public Use
  Company Number: US-009507513-1301USA008736

PATIENT
  Sex: Female

DRUGS (1)
  1. NASONEX [Suspect]
     Dosage: 50 MICROGRAM, ONE SPRAY IN EACH NOSTRIL ONCE A DAY
     Route: 045
     Dates: start: 200901

REACTIONS (4)
  - Drug dose omission [Unknown]
  - Product quality issue [Unknown]
  - Expired drug administered [Unknown]
  - No adverse event [Unknown]
